FAERS Safety Report 7329278-1 (Version None)
Quarter: 2011Q1

REPORT INFORMATION
  Report Type: 
  Country: None (occurrence: None)
  Receive Date: 20110303
  Receipt Date: 20110128
  Transmission Date: 20110831
  Serious: Yes (Other)
  Sender: FDA-Public Use
  Company Number: B0697353A

PATIENT
  Sex: Female

DRUGS (11)
  1. GASMOTIN [Concomitant]
     Route: 048
  2. MIYA BM [Concomitant]
     Route: 048
  3. LAFUTIDINE [Concomitant]
     Route: 048
  4. ISOSORBIDE MONONITRATE [Concomitant]
     Route: 048
  5. TIZANIDINE [Concomitant]
     Route: 048
  6. ZYRTEC [Concomitant]
     Route: 048
  7. FERROUS CITRATE [Concomitant]
     Route: 048
  8. MAGNESIUM OXIDE [Concomitant]
     Route: 048
  9. SERETIDE [Suspect]
     Indication: ASTHMA
     Dosage: 500MCG PER DAY
     Route: 048
     Dates: start: 20080317, end: 20100901
  10. CALBLOCK [Concomitant]
     Route: 048
  11. ACTONEL [Concomitant]
     Route: 048

REACTIONS (5)
  - ABDOMINAL PAIN UPPER [None]
  - GASTROINTESTINAL MUCOSAL DISORDER [None]
  - OESOPHAGEAL CANDIDIASIS [None]
  - CHEST PAIN [None]
  - BACK PAIN [None]
